FAERS Safety Report 5379291-9 (Version None)
Quarter: 2007Q3

REPORT INFORMATION
  Report Type: 
  Country: None (occurrence: None)
  Receive Date: 20070705
  Receipt Date: 20070626
  Transmission Date: 20080115
  Serious: Yes (Other)
  Sender: FDA-Public Use
  Company Number: DE-SHR-DE-2006-017694

PATIENT
  Sex: Female

DRUGS (1)
  1. BETASERON [Suspect]
     Route: 058
     Dates: start: 20050526

REACTIONS (3)
  - GLOMERULONEPHRITIS MEMBRANOUS [None]
  - OEDEMA [None]
  - PROTEINURIA [None]
